FAERS Safety Report 9787687 (Version 2)
Quarter: 2014Q2

REPORT INFORMATION
  Report Type: Spontaneous
  Country: US (occurrence: US)
  Receive Date: 20131230
  Receipt Date: 20140429
  Transmission Date: 20141212
  Serious: Yes (Other)
  Sender: FDA-Public Use
  Company Number: US-TEVA-453126USA

PATIENT
  Age: 31 Year
  Sex: Female
  Weight: 71.28 kg

DRUGS (3)
  1. PARAGARD 380A [Suspect]
     Indication: CONTRACEPTION
     Route: 015
     Dates: start: 20130905, end: 20131230
  2. PARAGARD 380A [Suspect]
     Route: 015
     Dates: start: 20131230
  3. TAMOXIFEN [Concomitant]

REACTIONS (5)
  - Device dislocation [Recovered/Resolved with Sequelae]
  - Device expulsion [Recovered/Resolved]
  - Menorrhagia [Unknown]
  - Metrorrhagia [Unknown]
  - Pain [Recovered/Resolved]
